FAERS Safety Report 4429790-9 (Version None)
Quarter: 2004Q3

REPORT INFORMATION
  Report Type: 
  Country: None (occurrence: None)
  Receive Date: 20040816
  Receipt Date: 20040805
  Transmission Date: 20050211
  Serious: Yes (Other)
  Sender: FDA-Public Use
  Company Number: 2004227320DE

PATIENT
  Sex: Female

DRUGS (2)
  1. AZULFIDINE [Suspect]
  2. CORTISONE (CORTISONE) [Concomitant]

REACTIONS (6)
  - CONSTIPATION [None]
  - DYSPNOEA [None]
  - FLATULENCE [None]
  - MOUTH PLAQUE [None]
  - PHOTOSENSITIVITY REACTION [None]
  - SWOLLEN TONGUE [None]
